FAERS Safety Report 25927439 (Version 1)
Quarter: 2025Q4

REPORT INFORMATION
  Report Type: Spontaneous
  Country: CH (occurrence: CH)
  Receive Date: 20251015
  Receipt Date: 20251015
  Transmission Date: 20260118
  Serious: Yes (Hospitalization, Other)
  Sender: JOHNSON AND JOHNSON
  Company Number: None

PATIENT
  Age: 18 Year
  Sex: Female

DRUGS (17)
  1. XARELTO [Interacting]
     Active Substance: RIVAROXABAN
     Indication: Product used for unknown indication
     Dosage: UNK MG
     Route: 048
     Dates: start: 20250921, end: 20250921
  2. XARELTO [Interacting]
     Active Substance: RIVAROXABAN
     Dosage: 10 MG
  3. NITROFURANTOIN [Suspect]
     Active Substance: NITROFURANTOIN
     Indication: Product used for unknown indication
     Dosage: 1 G
     Dates: start: 20250921, end: 20250921
  4. PANTOPRAZOLE [Suspect]
     Active Substance: PANTOPRAZOLE
     Indication: Product used for unknown indication
     Dosage: 300 MG
     Dates: start: 20250921, end: 20250921
  5. ERDOSTEINE [Suspect]
     Active Substance: ERDOSTEINE
     Indication: Product used for unknown indication
     Dosage: 3 G
     Dates: start: 20250921, end: 20250921
  6. DAFALGAN [Suspect]
     Active Substance: ACETAMINOPHEN
     Indication: Product used for unknown indication
     Dosage: 8 G
     Dates: start: 20250921, end: 20250921
  7. KETOROLAC TROMETHAMINE [Suspect]
     Active Substance: KETOROLAC TROMETHAMINE
     Indication: Product used for unknown indication
     Dosage: 100 MG
     Dates: start: 20250921, end: 20250921
  8. ALDACTONE [Suspect]
     Active Substance: SPIRONOLACTONE
     Indication: Product used for unknown indication
     Dosage: 250 MG
     Dates: start: 20250921, end: 20250921
  9. PREDNISONE [Suspect]
     Active Substance: PREDNISONE
     Indication: Product used for unknown indication
     Dosage: 1 G
     Dates: start: 20250921, end: 20250921
  10. CLARITHROMYCIN [Interacting]
     Active Substance: CLARITHROMYCIN
     Indication: Product used for unknown indication
     Dosage: 3500 MG
     Dates: start: 20250921, end: 20250921
  11. XANAX [Interacting]
     Active Substance: ALPRAZOLAM
     Indication: Product used for unknown indication
     Dosage: UNKNOWN DOSAGE
     Dates: end: 20250921
  12. XANAX [Interacting]
     Active Substance: ALPRAZOLAM
     Dosage: 5 MG, ONCE
     Dates: start: 20250921, end: 20250921
  13. FLUOXETINE [Interacting]
     Active Substance: FLUOXETINE HYDROCHLORIDE
     Indication: Product used for unknown indication
     Dosage: 200 MG
     Dates: start: 20250921, end: 20250921
  14. FLUOXETINE [Interacting]
     Active Substance: FLUOXETINE HYDROCHLORIDE
     Dosage: 20 MG
     Dates: end: 20250921
  15. QUETIAPINE [Concomitant]
     Active Substance: QUETIAPINE
     Indication: Product used for unknown indication
     Dosage: 25 MG
  16. QUETIAPINE [Concomitant]
     Active Substance: QUETIAPINE
     Indication: Product used for unknown indication
     Dosage: 50 MG
  17. ALPRAZOLAM [Concomitant]
     Active Substance: ALPRAZOLAM
     Indication: Product used for unknown indication

REACTIONS (7)
  - Altered state of consciousness [Recovered/Resolved]
  - Intentional overdose [Recovered/Resolved]
  - Coagulation factor X level abnormal [Recovered/Resolved]
  - Prothrombin time abnormal [Recovered/Resolved]
  - Activated partial thromboplastin time prolonged [Recovered/Resolved]
  - International normalised ratio abnormal [Recovered/Resolved]
  - Drug interaction [Recovered/Resolved]

NARRATIVE: CASE EVENT DATE: 20250901
